FAERS Safety Report 13872467 (Version 1)
Quarter: 2017Q3

REPORT INFORMATION
  Report Type: Spontaneous
  Country: US (occurrence: US)
  Receive Date: 20170814
  Receipt Date: 20170814
  Transmission Date: 20171127
  Serious: Yes (Disabling)
  Sender: FDA-Public Use
  Company Number: None

PATIENT
  Sex: Male
  Weight: 112.5 kg

DRUGS (11)
  1. CARDIZEM [Concomitant]
     Active Substance: DILTIAZEM HYDROCHLORIDE
  2. OMEPRAZOLE. [Concomitant]
     Active Substance: OMEPRAZOLE
  3. METAMUCIL [Concomitant]
     Active Substance: PLANTAGO SEED
  4. K-TAB [Concomitant]
     Active Substance: POTASSIUM CHLORIDE
  5. CONTRAVE [Suspect]
     Active Substance: BUPROPION HYDROCHLORIDE\NALTREXONE HYDROCHLORIDE
     Indication: WEIGHT CONTROL
     Dosage: ?          QUANTITY:1 TABLET(S);?
     Route: 048
     Dates: start: 20170401, end: 20170717
  6. FISH OIL [Concomitant]
     Active Substance: FISH OIL
  7. CENTRUM SILVER [Concomitant]
     Active Substance: MINERALS\VITAMINS
  8. CIALIS [Concomitant]
     Active Substance: TADALAFIL
  9. XARELTO [Concomitant]
     Active Substance: RIVAROXABAN
  10. BUMETANIDE. [Concomitant]
     Active Substance: BUMETANIDE
  11. SIMVASTATIN. [Concomitant]
     Active Substance: SIMVASTATIN

REACTIONS (9)
  - Gait disturbance [None]
  - Fatigue [None]
  - Balance disorder [None]
  - Tremor [None]
  - Tinnitus [None]
  - Musculoskeletal stiffness [None]
  - Unevaluable event [None]
  - Dysstasia [None]
  - Loss of libido [None]

NARRATIVE: CASE EVENT DATE: 20170426
